FAERS Safety Report 5709987-8 (Version None)
Quarter: 2008Q2

REPORT INFORMATION
  Report Type: 
  Country: None (occurrence: None)
  Receive Date: 20080418
  Receipt Date: 20070625
  Transmission Date: 20081010
  Serious: No
  Sender: FDA-Public Use
  Company Number: US-ASTRAZENECA-2007UW15126

PATIENT
  Age: 81 Year
  Sex: Female
  Weight: 42.2 kg

DRUGS (6)
  1. TOPROL-XL [Suspect]
     Indication: HYPERTENSION
     Route: 048
     Dates: start: 20070613
  2. LIPITOR [Concomitant]
  3. SYNTHROID [Concomitant]
  4. XANAX [Concomitant]
  5. ACTONEL [Concomitant]
  6. ZOLOFT [Concomitant]

REACTIONS (2)
  - PRURITUS [None]
  - SKIN DISCOLOURATION [None]
